FAERS Safety Report 8029437-9 (Version None)
Quarter: 2012Q1

REPORT INFORMATION
  Report Type: 
  Country: None (occurrence: None)
  Receive Date: 20120107
  Receipt Date: 20111213
  Transmission Date: 20120608
  Serious: No
  Sender: FDA-Public Use
  Company Number: US-ROXANE LABORATORIES, INC.-2011-RO-01803RO

PATIENT
  Sex: Female
  Weight: 42 kg

DRUGS (8)
  1. BALSALAZIDE DISODIUM [Suspect]
     Indication: COLITIS ULCERATIVE
     Dosage: 2250 MG
     Route: 048
     Dates: start: 20111121, end: 20111127
  2. SALMON OIL [Concomitant]
  3. BALSALAZIDE DISODIUM [Suspect]
     Dosage: 2250 MG
     Route: 048
     Dates: end: 20111212
  4. ENTOCORT EC [Concomitant]
     Indication: COLITIS ULCERATIVE
     Dosage: 9 MG
     Dates: start: 20110601
  5. FLAX SEED [Concomitant]
  6. BALSALAZIDE DISODIUM [Suspect]
     Dosage: 4500 MG
     Route: 048
     Dates: start: 20111128
  7. VSL 3 DS [Suspect]
     Indication: COLITIS ULCERATIVE
     Dates: start: 20111121
  8. L'GLUTAMINE [Concomitant]

REACTIONS (1)
  - FREQUENT BOWEL MOVEMENTS [None]
